FAERS Safety Report 22278808 (Version 1)
Quarter: 2023Q2

REPORT INFORMATION
  Report Type: Other
  Country: PL (occurrence: PL)
  Receive Date: 20230503
  Receipt Date: 20230503
  Transmission Date: 20230721
  Serious: Yes (Other)
  Sender: FDA-Public Use
  Company Number: PL-BoehringerIngelheim-2023-BI-233728

PATIENT
  Age: 69 Year
  Sex: Male

DRUGS (2)
  1. ALTEPLASE [Suspect]
     Active Substance: ALTEPLASE
     Indication: Pulmonary embolism
     Dosage: 2-HOUR
     Route: 042
  2. HEPARIN [Concomitant]
     Active Substance: HEPARIN SODIUM

REACTIONS (6)
  - Cerebral haemorrhage [Unknown]
  - Coronary artery thrombosis [Recovering/Resolving]
  - Vasogenic cerebral oedema [Unknown]
  - General physical health deterioration [Unknown]
  - Heart rate increased [Recovering/Resolving]
  - Blood pressure decreased [Recovering/Resolving]
